FAERS Safety Report 18017242 (Version 2)
Quarter: 2020Q3

REPORT INFORMATION
  Report Type: Spontaneous
  Country: CN (occurrence: CN)
  Receive Date: 20200714
  Receipt Date: 20200810
  Transmission Date: 20201103
  Serious: Yes (Hospitalization, Other)
  Sender: FDA-Public Use
  Company Number: CN-LUPIN PHARMACEUTICALS INC.-2020-03283

PATIENT
  Age: 21 Year
  Sex: Male

DRUGS (32)
  1. QUETIAPINE FUMARATE. [Suspect]
     Active Substance: QUETIAPINE FUMARATE
     Indication: BIPOLAR DISORDER
     Dosage: 800 MILLIGRAM, QD
     Route: 065
  2. QUETIAPINE FUMARATE. [Suspect]
     Active Substance: QUETIAPINE FUMARATE
     Indication: OBSESSIVE-COMPULSIVE DISORDER
  3. DIVALPROEX SODIUM. [Suspect]
     Active Substance: DIVALPROEX SODIUM
     Indication: OBSESSIVE-COMPULSIVE DISORDER
     Dosage: 1000 MILLIGRAM, QD
     Route: 065
     Dates: start: 201706
  4. CLOZAPINE. [Suspect]
     Active Substance: CLOZAPINE
     Indication: GAMBLING DISORDER
  5. CLONAZEPAM. [Suspect]
     Active Substance: CLONAZEPAM
     Indication: INSOMNIA
  6. SERTRALINE [Concomitant]
     Active Substance: SERTRALINE HYDROCHLORIDE
     Indication: GAMBLING DISORDER
  7. OXCARBAZEPINE. [Concomitant]
     Active Substance: OXCARBAZEPINE
     Indication: OBSESSIVE-COMPULSIVE DISORDER
     Dosage: 900 MILLIGRAM, QD
     Route: 065
     Dates: start: 201712
  8. QUETIAPINE FUMARATE. [Suspect]
     Active Substance: QUETIAPINE FUMARATE
     Indication: GAMBLING DISORDER
  9. CLONAZEPAM. [Suspect]
     Active Substance: CLONAZEPAM
     Indication: BIPOLAR DISORDER
     Dosage: 2 MILLIGRAM, QD (AT NIGHT)
     Route: 065
     Dates: start: 201707, end: 2017
  10. SERTRALINE [Concomitant]
     Active Substance: SERTRALINE HYDROCHLORIDE
     Indication: OBSESSIVE-COMPULSIVE DISORDER
  11. OXCARBAZEPINE. [Concomitant]
     Active Substance: OXCARBAZEPINE
     Indication: BIPOLAR DISORDER
     Dosage: 900 MILLIGRAM, QD
     Route: 065
     Dates: start: 201707
  12. ZIPRASIDONE. [Suspect]
     Active Substance: ZIPRASIDONE
     Dosage: 40 MILLIGRAM, QD
     Route: 065
     Dates: start: 201803
  13. DIVALPROEX SODIUM. [Suspect]
     Active Substance: DIVALPROEX SODIUM
     Indication: BIPOLAR DISORDER
     Dosage: 1000 MILLIGRAM, QD
     Route: 065
     Dates: start: 201707
  14. ZIPRASIDONE. [Suspect]
     Active Substance: ZIPRASIDONE
     Indication: AGITATION
     Dosage: 20 MILLIGRAM, BID
     Route: 030
     Dates: start: 201712
  15. ZIPRASIDONE. [Suspect]
     Active Substance: ZIPRASIDONE
     Dosage: 80 MILLIGRAM, BID (CAPSULE)
     Route: 065
     Dates: start: 201712
  16. FLUVOXAMINE [Suspect]
     Active Substance: FLUVOXAMINE
     Indication: BIPOLAR DISORDER
     Dosage: 50 MILLIGRAM, QD
     Route: 065
     Dates: start: 201706
  17. CLOZAPINE. [Suspect]
     Active Substance: CLOZAPINE
     Indication: INSOMNIA
  18. OXCARBAZEPINE. [Concomitant]
     Active Substance: OXCARBAZEPINE
     Indication: GAMBLING DISORDER
  19. LITHIUM. [Concomitant]
     Active Substance: LITHIUM
     Indication: GAMBLING DISORDER
  20. ZIPRASIDONE. [Suspect]
     Active Substance: ZIPRASIDONE
     Indication: BIPOLAR DISORDER
     Dosage: 20 MILLIGRAM, BID
     Route: 030
     Dates: start: 201707
  21. ZIPRASIDONE. [Suspect]
     Active Substance: ZIPRASIDONE
     Indication: OBSESSIVE-COMPULSIVE DISORDER
     Dosage: 80 MILLIGRAM, BID (CAPSULE)
     Route: 065
     Dates: start: 201707
  22. FLUVOXAMINE [Suspect]
     Active Substance: FLUVOXAMINE
     Indication: GAMBLING DISORDER
     Dosage: 300 MILLIGRAM, QD
     Route: 065
     Dates: start: 201706
  23. CLONAZEPAM. [Suspect]
     Active Substance: CLONAZEPAM
     Indication: GAMBLING DISORDER
  24. LITHIUM. [Concomitant]
     Active Substance: LITHIUM
     Indication: BIPOLAR DISORDER
  25. DIVALPROEX SODIUM. [Suspect]
     Active Substance: DIVALPROEX SODIUM
     Indication: GAMBLING DISORDER
     Dosage: 1000 MILLIGRAM, QD
     Route: 065
     Dates: start: 201712
  26. CLONAZEPAM. [Suspect]
     Active Substance: CLONAZEPAM
     Indication: OBSESSIVE-COMPULSIVE DISORDER
     Dosage: 3 MILLIGRAM, QD
     Route: 065
     Dates: start: 201712
  27. SERTRALINE [Concomitant]
     Active Substance: SERTRALINE HYDROCHLORIDE
     Indication: BIPOLAR DISORDER
     Dosage: 100 MILLIGRAM, QD
     Route: 065
     Dates: start: 201707
  28. LITHIUM. [Concomitant]
     Active Substance: LITHIUM
     Indication: OBSESSIVE-COMPULSIVE DISORDER
     Dosage: 1200 MILLIGRAM, QD
     Route: 065
  29. CLOZAPINE. [Suspect]
     Active Substance: CLOZAPINE
     Indication: BIPOLAR DISORDER
     Dosage: 50 MILLIGRAM, AT BEDTIME
     Route: 065
     Dates: start: 201707, end: 2017
  30. CLOZAPINE. [Suspect]
     Active Substance: CLOZAPINE
     Indication: OBSESSIVE-COMPULSIVE DISORDER
  31. ZIPRASIDONE. [Suspect]
     Active Substance: ZIPRASIDONE
     Indication: GAMBLING DISORDER
     Dosage: 40 MILLIGRAM, QD, CAPSULE
     Route: 065
     Dates: start: 201707
  32. FLUVOXAMINE [Suspect]
     Active Substance: FLUVOXAMINE
     Indication: OBSESSIVE-COMPULSIVE DISORDER

REACTIONS (6)
  - Sedation complication [Recovered/Resolved]
  - Condition aggravated [Recovered/Resolved]
  - Depressive symptom [Recovered/Resolved]
  - Drug ineffective [Unknown]
  - Suicide attempt [Recovered/Resolved]
  - Off label use [Unknown]

NARRATIVE: CASE EVENT DATE: 201706
